FAERS Safety Report 10494318 (Version 1)
Quarter: 2014Q4

REPORT INFORMATION
  Report Type: Spontaneous
  Country: IT (occurrence: None)
  Receive Date: 20141001
  Receipt Date: 20141001
  Transmission Date: 20150528
  Serious: Yes (Death, Hospitalization)
  Sender: FDA-Public Use
  Company Number: 2014/073

PATIENT
  Age: 65 Year
  Sex: Male

DRUGS (2)
  1. ROPINIROLE ER [Suspect]
     Active Substance: ROPINIROLE
     Indication: PARKINSON^S DISEASE
     Dates: start: 2012, end: 2012
  2. LEVODOPA [Suspect]
     Active Substance: LEVODOPA
     Indication: PARKINSON^S DISEASE
     Dates: start: 2012, end: 2012

REACTIONS (5)
  - Impulse-control disorder [None]
  - Polydipsia [None]
  - Dopamine dysregulation syndrome [None]
  - Dyskinesia [None]
  - Pneumonia [None]
